FAERS Safety Report 8090327 (Version 7)
Quarter: 2013Q3

REPORT INFORMATION
  Report Type: Spontaneous
  Country: NL (occurrence: NL)
  Receive Date: 20110815
  Receipt Date: 20130717
  Transmission Date: 20140515
  Serious: Yes (Death, Hospitalization, Other)
  Sender: FDA-Public Use
  Company Number: PHHY2011NL72017

PATIENT
  Age: 65 Year
  Sex: Female

DRUGS (6)
  1. CLOZAPINE [Suspect]
     Indication: SCHIZOPHRENIA
     Dosage: 300 MG, DAILY
  2. CLOZAPINE [Interacting]
     Dosage: 300 MG, QD
  3. AMITRIPTYLINE [Interacting]
     Dosage: 250 MG, DAILY
  4. AMITRIPTYLINE [Interacting]
     Dosage: 50 MG,
  5. PROMETHAZINE [Concomitant]
     Dosage: 25 MG,
  6. PARACETAMOL [Concomitant]
     Dosage: 500 MG,

REACTIONS (9)
  - Respiratory failure [Fatal]
  - Interstitial lung disease [Fatal]
  - Humerus fracture [Unknown]
  - Drug interaction [Unknown]
  - Inflammation [Unknown]
  - Pulmonary toxicity [Unknown]
  - Toxicity to various agents [Unknown]
  - Bronchoalveolar lavage abnormal [Unknown]
  - Antipsychotic drug level above therapeutic [Unknown]
